FAERS Safety Report 13297425 (Version 1)
Quarter: 2017Q1

REPORT INFORMATION
  Report Type: Spontaneous
  Country: US (occurrence: US)
  Receive Date: 20170303
  Receipt Date: 20170303
  Transmission Date: 20170428
  Serious: Yes (Disabling, Other)
  Sender: FDA-Public Use
  Company Number: None

PATIENT
  Age: 51 Year
  Sex: Female
  Weight: 63 kg

DRUGS (9)
  1. AMERGE [Concomitant]
     Active Substance: NARATRIPTAN HYDROCHLORIDE
  2. POLYETHYLENE GLYCOL 3350, NF POWDER FOR SOLUTION, LAXATIVE [Suspect]
     Active Substance: POLYETHYLENE GLYCOL 3350
     Indication: INTESTINAL OBSTRUCTION
     Dosage: 1 SACHET DAILY ORAL
     Route: 048
     Dates: start: 20140210, end: 20170131
  3. HYDRACODONE/ACETAMINOPHEN [Concomitant]
     Active Substance: ACETAMINOPHEN\HYDROCODONE
  4. LINZESS [Concomitant]
     Active Substance: LINACLOTIDE
  5. TIZANTIDINE [Concomitant]
  6. CPAP [Concomitant]
     Active Substance: DEVICE
  7. PROPRANOLOL [Concomitant]
     Active Substance: PROPRANOLOL HYDROCHLORIDE
  8. EFFEXOR [Concomitant]
     Active Substance: VENLAFAXINE HYDROCHLORIDE
  9. CLONAZEPAM. [Concomitant]
     Active Substance: CLONAZEPAM

REACTIONS (12)
  - Abdominal distension [None]
  - Haemorrhoids [None]
  - Abdominal pain upper [None]
  - Abdominal tenderness [None]
  - Anxiety [None]
  - Depression [None]
  - Fatty liver alcoholic [None]
  - Large intestine polyp [None]
  - Vomiting [None]
  - Drug ineffective [None]
  - Anal incontinence [None]
  - Precancerous cells present [None]

NARRATIVE: CASE EVENT DATE: 20170131
